FAERS Safety Report 7692820-5 (Version None)
Quarter: 2011Q3

REPORT INFORMATION
  Report Type: 
  Country: None (occurrence: None)
  Receive Date: 20110819
  Receipt Date: 20110808
  Transmission Date: 20111222
  Serious: Yes (Other)
  Sender: FDA-Public Use
  Company Number: US-ELI_LILLY_AND_COMPANY-US201107005930

PATIENT
  Sex: Male

DRUGS (6)
  1. HUMALOG [Suspect]
     Dosage: UNK, PRN
  2. HUMALOG [Suspect]
     Indication: DIABETES MELLITUS
     Dosage: UNK, TID
     Dates: start: 20010101
  3. HUMALOG [Suspect]
     Dosage: UNK
  4. LANTUS [Concomitant]
     Dosage: 56 U, EACH EVENING
  5. HUMALOG [Suspect]
     Dosage: UNK, TID
  6. HUMALOG [Suspect]
     Dosage: UNK, TID
     Dates: start: 20010101

REACTIONS (3)
  - EYE DISORDER [None]
  - GLAUCOMA [None]
  - BLINDNESS [None]
